FAERS Safety Report 16492701 (Version 2)
Quarter: 2019Q3

REPORT INFORMATION
  Report Type: Spontaneous
  Country: US (occurrence: US)
  Receive Date: 20190628
  Receipt Date: 20190930
  Transmission Date: 20191004
  Serious: No
  Sender: FDA-Public Use
  Company Number: US-INDIVIOR LIMITED-INDV-119504-2019

PATIENT
  Age: 28 Year
  Sex: Female

DRUGS (4)
  1. SUBLOCADE [Suspect]
     Active Substance: BUPRENORPHINE
     Indication: DRUG ABUSE
     Dosage: 100 MILLIGRAM, QMO (2 INJECTIONS)
     Route: 065
     Dates: start: 20190409, end: 20190614
  2. SUBLOCADE [Suspect]
     Active Substance: BUPRENORPHINE
     Indication: DRUG ABUSE
     Dosage: 300 MILLIGRAM, QMO
     Route: 065
     Dates: start: 20190212, end: 20190312
  3. SUBLOCADE [Suspect]
     Active Substance: BUPRENORPHINE
     Dosage: 300 MILLIGRAM, QMO
     Route: 065
     Dates: start: 20190614
  4. SUBOXONE [Suspect]
     Active Substance: BUPRENORPHINE HYDROCHLORIDE\NALOXONE HYDROCHLORIDE
     Indication: PRODUCT USED FOR UNKNOWN INDICATION
     Dosage: UNK
     Route: 065
     Dates: start: 2019, end: 2019

REACTIONS (5)
  - Pre-existing condition improved [Recovering/Resolving]
  - Substance abuse [Unknown]
  - Drug dependence [Recovering/Resolving]
  - Drug withdrawal syndrome [Recovering/Resolving]
  - Therapeutic product effect incomplete [Unknown]

NARRATIVE: CASE EVENT DATE: 2019
